FAERS Safety Report 17536532 (Version 1)
Quarter: 2020Q1

REPORT INFORMATION
  Report Type: Report from Study
  Country: US (occurrence: US)
  Receive Date: 20200313
  Receipt Date: 20200313
  Transmission Date: 20200409
  Serious: Yes (Other)
  Sender: FDA-Public Use
  Company Number: US-ACADIA PHARMACEUTICALS INC.-ACA-2020-PIM-000784

PATIENT
  Age: 73 Year
  Sex: Female

DRUGS (3)
  1. NUPLAZID [Suspect]
     Active Substance: PIMAVANSERIN TARTRATE
     Indication: DELUSION
  2. NUPLAZID [Suspect]
     Active Substance: PIMAVANSERIN TARTRATE
     Indication: PARKINSON^S DISEASE PSYCHOSIS
     Dosage: 34 MILLIGRAM, QD
     Route: 048
     Dates: start: 20190418
  3. NUPLAZID [Suspect]
     Active Substance: PIMAVANSERIN TARTRATE
     Indication: HALLUCINATION

REACTIONS (6)
  - Condition aggravated [Not Recovered/Not Resolved]
  - Fall [Unknown]
  - Facial bones fracture [Not Recovered/Not Resolved]
  - Product dose omission [Unknown]
  - Eye disorder [Not Recovered/Not Resolved]
  - Device physical property issue [Not Recovered/Not Resolved]

NARRATIVE: CASE EVENT DATE: 202002
